FAERS Safety Report 25473703 (Version 1)
Quarter: 2025Q2

REPORT INFORMATION
  Report Type: Spontaneous
  Country: GB (occurrence: GB)
  Receive Date: 20250624
  Receipt Date: 20250624
  Transmission Date: 20250716
  Serious: Yes (Other)
  Sender: PFIZER
  Company Number: GB-MHRA-35923727

PATIENT
  Age: 24 Year
  Sex: Male
  Weight: 50 kg

DRUGS (5)
  1. RIMEGEPANT [Suspect]
     Active Substance: RIMEGEPANT
     Indication: Migraine
     Route: 048
     Dates: start: 20240412, end: 20240415
  2. CANDESARTAN [Concomitant]
     Active Substance: CANDESARTAN
     Indication: Migraine
     Route: 048
     Dates: start: 20240315, end: 20240415
  3. SUMATRIPTAN [Concomitant]
     Active Substance: SUMATRIPTAN
     Route: 048
  4. ACETAMINOPHEN [Concomitant]
     Active Substance: ACETAMINOPHEN
     Route: 048
     Dates: start: 20240412
  5. CITALOPRAM [Concomitant]
     Active Substance: CITALOPRAM
     Route: 048
     Dates: start: 20240412

REACTIONS (2)
  - Hallucination [Not Recovered/Not Resolved]
  - Nightmare [Not Recovered/Not Resolved]

NARRATIVE: CASE EVENT DATE: 20240415
